FAERS Safety Report 4274114-3 (Version None)
Quarter: 2004Q1

REPORT INFORMATION
  Report Type: 
  Country: None (occurrence: None)
  Receive Date: 20040120
  Receipt Date: 20040113
  Transmission Date: 20041129
  Serious: Yes (Disabling)
  Sender: FDA-Public Use
  Company Number: CH-GLAXOSMITHKLINE-B0319665A

PATIENT
  Sex: Female

DRUGS (7)
  1. DILATREND [Suspect]
     Indication: ESSENTIAL HYPERTENSION
     Dosage: 25MG PER DAY
     Route: 048
     Dates: start: 19970415, end: 20031112
  2. MARCOUMAR [Suspect]
     Indication: ATRIAL FIBRILLATION
     Dosage: .75MG PER DAY
     Route: 048
     Dates: start: 19961122, end: 20031029
  3. TOREM [Concomitant]
     Dates: start: 19971218
  4. NITRODERM [Concomitant]
     Dates: start: 19970707
  5. TAMOFEN [Concomitant]
     Dates: start: 19991009
  6. EXTRACT OF GINKGO [Concomitant]
     Dates: start: 19980812
  7. MULTIVITAMINS + MINERAL SUPPLEMENTS [Concomitant]
     Dates: start: 19990707

REACTIONS (7)
  - ABASIA [None]
  - CACHEXIA [None]
  - EATON-LAMBERT SYNDROME [None]
  - MUSCLE ATROPHY [None]
  - MUSCULAR WEAKNESS [None]
  - MYOPATHY [None]
  - OEDEMA PERIPHERAL [None]
